FAERS Safety Report 11203621 (Version 1)
Quarter: 2015Q2

REPORT INFORMATION
  Report Type: Spontaneous
  Country: US (occurrence: US)
  Receive Date: 20150619
  Receipt Date: 20150619
  Transmission Date: 20150821
  Serious: No
  Sender: FDA-Public Use
  Company Number: US-ELI_LILLY_AND_COMPANY-US201505009756

PATIENT
  Age: 24 Year
  Sex: Female

DRUGS (3)
  1. ORTHO TRI CYCLEN LO [Concomitant]
     Active Substance: ETHINYL ESTRADIOL\NORGESTIMATE
     Dosage: 1 DF, UNKNOWN
     Route: 065
  2. STRATTERA [Suspect]
     Active Substance: ATOMOXETINE HYDROCHLORIDE
     Indication: ATTENTION DEFICIT/HYPERACTIVITY DISORDER
     Dosage: 80 MG, UNKNOWN
     Route: 065
     Dates: start: 201501
  3. LORATADIN [Suspect]
     Active Substance: LORATADINE
     Indication: SEASONAL ALLERGY
     Dosage: 1 DF, UNKNOWN
     Route: 065

REACTIONS (6)
  - Chest pain [Recovered/Resolved]
  - Depressed mood [Unknown]
  - Palpitations [Recovered/Resolved]
  - Fatigue [Unknown]
  - Intentional product misuse [Unknown]
  - Drug ineffective [Unknown]
